FAERS Safety Report 7721971-1 (Version None)
Quarter: 2011Q3

REPORT INFORMATION
  Report Type: 
  Country: None (occurrence: None)
  Receive Date: 20110825
  Receipt Date: 20110817
  Transmission Date: 20111222
  Serious: Yes (Hospitalization)
  Sender: FDA-Public Use
  Company Number: 15971047

PATIENT
  Age: 80 Year
  Sex: Male

DRUGS (4)
  1. ENOXAPARIN SODIUM [Suspect]
     Indication: EMBOLISM
     Dosage: 160 MILLILITER, SC
     Route: 058
     Dates: start: 20110719, end: 20110726
  2. APIXABAN [Suspect]
     Indication: EMBOLISM
     Dosage: 10 MILLIGRAM 1 DAY, ORAL
     Route: 048
     Dates: start: 20110719
  3. PLACEBO [Suspect]
     Indication: EMBOLISM
     Dates: start: 20110719
  4. WARFARIN SODIUM [Suspect]
     Indication: EMBOLISM
     Dosage: 4 MILLIGRAM 1 DAY, ORAL
     Route: 048
     Dates: start: 20110719

REACTIONS (1)
  - PNEUMONIA [None]
